FAERS Safety Report 7420901-X (Version None)
Quarter: 2011Q2

REPORT INFORMATION
  Report Type: 
  Country: None (occurrence: None)
  Receive Date: 20110418
  Receipt Date: 20110408
  Transmission Date: 20111010
  Serious: Yes (Other)
  Sender: FDA-Public Use
  Company Number: A0923086A

PATIENT
  Age: 81 Year
  Sex: Male
  Weight: 75.9 kg

DRUGS (8)
  1. SENOKOT [Concomitant]
  2. AMLODIPINE [Concomitant]
  3. REGLAN [Concomitant]
  4. MULTI-VITAMIN [Concomitant]
  5. ZOMETA [Concomitant]
  6. OMEPRAZOLE [Concomitant]
  7. FLOMAX [Concomitant]
  8. VOTRIENT [Suspect]
     Dosage: 800MG PER DAY
     Route: 048

REACTIONS (4)
  - NAUSEA [None]
  - CONFUSIONAL STATE [None]
  - MONOPLEGIA [None]
  - VOMITING [None]
